FAERS Safety Report 6876549-9 (Version None)
Quarter: 2010Q3

REPORT INFORMATION
  Report Type: 
  Country: None (occurrence: None)
  Receive Date: 20100723
  Receipt Date: 20100712
  Transmission Date: 20110219
  Serious: No
  Sender: FDA-Public Use
  Company Number: 7010888

PATIENT
  Age: 56 Year
  Sex: Female

DRUGS (1)
  1. REBIF [Suspect]
     Indication: MULTIPLE SCLEROSIS
     Dosage: 22 MCG, 3 IN 1 WK; SUBCUTANEOUS
     Route: 058
     Dates: start: 20100614, end: 20100709

REACTIONS (7)
  - ARTHRALGIA [None]
  - DEREALISATION [None]
  - EPISTAXIS [None]
  - FEELING ABNORMAL [None]
  - HAEMOPTYSIS [None]
  - HALLUCINATION [None]
  - HEADACHE [None]
